FAERS Safety Report 6554148-6 (Version None)
Quarter: 2010Q1

REPORT INFORMATION
  Report Type: 
  Country: None (occurrence: None)
  Receive Date: 20100125
  Receipt Date: 20100125
  Transmission Date: 20100710
  Serious: Yes (Other)
  Sender: FDA-Public Use
  Company Number: None

PATIENT
  Sex: Female
  Weight: 84.5 kg

DRUGS (1)
  1. ALLI [Suspect]
     Indication: OBESITY
     Dosage: 60 MG ONCE DAILY PO
     Route: 048
     Dates: start: 20080801, end: 20090807

REACTIONS (2)
  - HEPATIC CYST [None]
  - TRANSAMINASES INCREASED [None]
